FAERS Safety Report 21175778 (Version 1)
Quarter: 2022Q3

REPORT INFORMATION
  Report Type: Spontaneous
  Country: CA (occurrence: CA)
  Receive Date: 20220805
  Receipt Date: 20220805
  Transmission Date: 20221027
  Serious: Yes (Hospitalization)
  Sender: FDA-Public Use
  Company Number: CA-BAYER-2022A104937

PATIENT
  Age: 60 Year
  Sex: Male

DRUGS (9)
  1. RIVAROXABAN [Suspect]
     Active Substance: RIVAROXABAN
     Indication: Product used for unknown indication
     Dosage: 20 MG (1 EVERY 1 DAYS)
     Route: 048
  2. NAPROXEN [Suspect]
     Active Substance: NAPROXEN
     Indication: Back pain
     Dosage: 250 MG (1 EVERY 1 DAYS)
     Route: 065
  3. DEPO-MEDROL [Concomitant]
     Active Substance: METHYLPREDNISOLONE ACETATE
  4. OXYCODONE [Concomitant]
     Active Substance: OXYCODONE
  5. PERINDOPRIL ARGININE [Concomitant]
     Active Substance: PERINDOPRIL ARGININE
  6. CRESTOR [Concomitant]
     Active Substance: ROSUVASTATIN CALCIUM
  7. MORNIFLUMATE [Concomitant]
     Active Substance: MORNIFLUMATE
  8. OXYCODONE HYDROCHLORIDE [Concomitant]
     Active Substance: OXYCODONE HYDROCHLORIDE
  9. CEFIXIME [Concomitant]
     Active Substance: CEFIXIME

REACTIONS (13)
  - Melaena [Unknown]
  - Fatigue [Unknown]
  - Presyncope [Unknown]
  - Diarrhoea [Unknown]
  - Anaemia [Unknown]
  - Upper gastrointestinal haemorrhage [Unknown]
  - Gastritis [Unknown]
  - Nausea [Unknown]
  - Vomiting [Unknown]
  - Faeces discoloured [Unknown]
  - Haematochezia [Unknown]
  - Asthenia [Unknown]
  - Dizziness [Unknown]
